FAERS Safety Report 8530708 (Version 5)
Quarter: 2012Q4

REPORT INFORMATION
  Report Type: 
  Country: ES (occurrence: ES)
  Receive Date: 20120425
  Receipt Date: 20121101
  Transmission Date: 20130627
  Serious: Yes (Other)
  Sender: FDA-Public Use
  Company Number: ES-PFIZER INC-2012100634

PATIENT
  Age: 66 Year
  Sex: Male

DRUGS (1)
  1. CARDYL [Suspect]
     Indication: MYOCARDIAL INFARCTION
     Dosage: 40 mg, once daily
     Route: 048
     Dates: start: 2004, end: 2011

REACTIONS (3)
  - Pulmonary fibrosis [Not Recovered/Not Resolved]
  - Chronic obstructive pulmonary disease [Unknown]
  - Blister [Unknown]
